FAERS Safety Report 13512444 (Version 2)
Quarter: 2017Q2

REPORT INFORMATION
  Report Type: Spontaneous
  Country: FR (occurrence: FR)
  Receive Date: 20170504
  Receipt Date: 20170607
  Transmission Date: 20170830
  Serious: Yes (Life-Threatening, Hospitalization)
  Sender: FDA-Public Use
  Company Number: FR-ORION CORPORATION ORION PHARMA-TREX2017-1296

PATIENT
  Age: 62 Year
  Sex: Female

DRUGS (8)
  1. ENBREL [Suspect]
     Active Substance: ETANERCEPT
     Indication: RHEUMATOID ARTHRITIS
     Dosage: STRENGTH: 25 MG
     Route: 058
     Dates: start: 200801, end: 20170202
  2. SPECIAFOLDINE [Concomitant]
     Active Substance: FOLIC ACID
     Route: 065
  3. PRAZEPAM BIOGARAN [Concomitant]
     Active Substance: PRAZEPAM
     Route: 065
  4. CITALOPRAM MYLAN [Concomitant]
     Active Substance: CITALOPRAM HYDROBROMIDE
     Route: 065
  5. LEVOTHYROX [Concomitant]
     Active Substance: LEVOTHYROXINE
     Route: 065
  6. INEGY [Concomitant]
     Active Substance: EZETIMIBE\SIMVASTATIN
     Route: 065
  7. IMETH [Suspect]
     Active Substance: METHOTREXATE SODIUM
     Indication: RHEUMATOID ARTHRITIS
     Dosage: STRENGTH: 10 MG
     Route: 048
     Dates: start: 200706
  8. VALSARTAN MYLAN [Concomitant]
     Active Substance: VALSARTAN
     Route: 065

REACTIONS (1)
  - Invasive ductal breast carcinoma [Not Recovered/Not Resolved]

NARRATIVE: CASE EVENT DATE: 20170111
